FAERS Safety Report 9559443 (Version 2)
Quarter: 2014Q2

REPORT INFORMATION
  Report Type: Spontaneous
  Country: FR (occurrence: FR)
  Receive Date: 20130927
  Receipt Date: 20140509
  Transmission Date: 20141212
  Serious: No
  Sender: FDA-Public Use
  Company Number: FR-ELI_LILLY_AND_COMPANY-FR201309006718

PATIENT
  Age: 60 Year
  Sex: Male

DRUGS (3)
  1. CYMBALTA [Suspect]
     Indication: DEPRESSION
     Dosage: 60 MG, UNKNOWN
     Route: 048
     Dates: start: 20130522
  2. CYMBALTA [Suspect]
     Indication: ANXIETY DISORDER
  3. ALPRAZOLAM [Concomitant]
     Indication: ANXIETY
     Dosage: 0.25 MG, OTHER: OCCASIONAL TREATMENT
     Route: 048

REACTIONS (4)
  - Aspartate aminotransferase increased [Recovered/Resolved]
  - Alanine aminotransferase increased [Recovered/Resolved]
  - Gamma-glutamyltransferase increased [Recovered/Resolved]
  - Asthenia [Recovered/Resolved]
